FAERS Safety Report 24432457 (Version 1)
Quarter: 2024Q4

REPORT INFORMATION
  Report Type: Spontaneous
  Country: US (occurrence: US)
  Receive Date: 20241014
  Receipt Date: 20241014
  Transmission Date: 20250115
  Serious: Yes (Disabling, Other)
  Sender: MYLAN
  Company Number: US-MYLANLABS-2024M1091182

PATIENT
  Age: 38 Year
  Sex: Male

DRUGS (4)
  1. TRIAMCINOLONE [Suspect]
     Active Substance: TRIAMCINOLONE
     Indication: Chorioretinopathy
     Dosage: UNK
     Route: 031
  2. PREDNISONE [Suspect]
     Active Substance: PREDNISONE
     Indication: Chorioretinopathy
     Dosage: UNK
     Route: 048
  3. METHOTREXATE [Suspect]
     Active Substance: METHOTREXATE
     Indication: Choroidal osteoma
     Dosage: UNK
     Route: 048
  4. METHOTREXATE [Suspect]
     Active Substance: METHOTREXATE
     Dosage: 25 MILLIGRAM, QW; INCREASED
     Route: 048

REACTIONS (6)
  - Choroidal osteoma [Recovering/Resolving]
  - Condition aggravated [Recovering/Resolving]
  - Drug ineffective [Unknown]
  - Blindness [Unknown]
  - Choroidal neovascularisation [Recovered/Resolved]
  - Retinal haemorrhage [Recovered/Resolved]
